FAERS Safety Report 24873045 (Version 1)
Quarter: 2025Q1

REPORT INFORMATION
  Report Type: Spontaneous
  Country: US (occurrence: None)
  Receive Date: 20250121
  Receipt Date: 20250121
  Transmission Date: 20250409
  Serious: Yes (Hospitalization)
  Sender: FDA-CTU
  Company Number: None

PATIENT
  Age: 50 Year
  Sex: Female
  Weight: 71.3 kg

DRUGS (1)
  1. IQIRVO [Suspect]
     Active Substance: ELAFIBRANOR
     Indication: Primary biliary cholangitis
     Dosage: FREQUENCY : DAILY;?
     Route: 048
     Dates: start: 20241106, end: 20241112

REACTIONS (2)
  - Diarrhoea [None]
  - Hepatic enzyme increased [None]

NARRATIVE: CASE EVENT DATE: 20241112
